FAERS Safety Report 8914678 (Version 1)
Quarter: 2012Q4

REPORT INFORMATION
  Report Type: Report from Study
  Country: PL (occurrence: PL)
  Receive Date: 20121119
  Receipt Date: 20121119
  Transmission Date: 20130627
  Serious: Yes (Death, Hospitalization)
  Sender: FDA-Public Use
  Company Number: PL-BAYER-2012-120558

PATIENT
  Age: 58 Year
  Sex: Female
  Weight: 118 kg

DRUGS (9)
  1. SORAFENIB (RAF KINASE INHIBITOR) [Suspect]
     Dosage: 800 mg
     Route: 048
     Dates: start: 20120529, end: 20120808
  2. TRITACE [Concomitant]
     Indication: HYPERTENSION ARTERIAL
     Dosage: 10 mg, QD
     Route: 048
  3. FUROSEMIDUM [Concomitant]
     Indication: OEDEMA
     Dosage: 40 mg
     Route: 048
     Dates: end: 20120808
  4. FUROSEMIDUM [Concomitant]
     Indication: HYPERTENSION
  5. KALIPOZ [Concomitant]
     Indication: SUPPLEMENTATION THERAPY
     Dosage: 391 mg, BID
     Route: 048
  6. AMLOZEK [Concomitant]
     Indication: HYPERTENSION ARTERIAL
     Dosage: 5 mg
     Route: 048
  7. POLPRAZOL [Concomitant]
     Indication: GASTRITIS
     Dosage: 20 mg
     Route: 048
  8. INSULIN NOVORAPID [Concomitant]
     Indication: DIABETES MELLITUS
     Dosage: 10-10-6 IU
     Route: 058
  9. INSULATARD [INSULIN HUMAN] [Concomitant]
     Indication: DIABETES MELLITUS
     Dosage: 12 IU
     Route: 058

REACTIONS (4)
  - Pulmonary embolism [Fatal]
  - Protein total decreased [None]
  - Haemoglobin decreased [None]
  - Fibrin D dimer increased [None]
